FAERS Safety Report 11313286 (Version 1)
Quarter: 2015Q3

REPORT INFORMATION
  Report Type: Spontaneous
  Country: US (occurrence: US)
  Receive Date: 20150727
  Receipt Date: 20150727
  Transmission Date: 20151125
  Serious: No
  Sender: FDA-Public Use
  Company Number: US-ABBVIE-15P-163-1397039-00

PATIENT
  Age: 48 Year
  Sex: Male

DRUGS (3)
  1. LEVOTHYROXINE. [Suspect]
     Active Substance: LEVOTHYROXINE
     Indication: PRODUCT USED FOR UNKNOWN INDICATION
     Dosage: LOW DOSAGE
     Route: 065
     Dates: start: 2007
  2. LEVOTHYROXINE. [Suspect]
     Active Substance: LEVOTHYROXINE
     Route: 065
     Dates: start: 2012
  3. SYNTHROID [Suspect]
     Active Substance: LEVOTHYROXINE SODIUM
     Indication: PRODUCT USED FOR UNKNOWN INDICATION
     Route: 065

REACTIONS (19)
  - Sluggishness [Unknown]
  - Nasopharyngitis [Unknown]
  - Influenza [Unknown]
  - Feeling abnormal [Unknown]
  - Unevaluable event [Unknown]
  - Lethargy [Unknown]
  - Insomnia [Unknown]
  - Dysphemia [Unknown]
  - Dysarthria [Unknown]
  - Sinusitis [Unknown]
  - Unhealthy diet [Unknown]
  - Vitamin D decreased [Unknown]
  - Anti-thyroid antibody positive [Unknown]
  - Activities of daily living impaired [Unknown]
  - Feeling abnormal [Unknown]
  - Autoimmune thyroiditis [Unknown]
  - Feeling abnormal [Unknown]
  - Memory impairment [Unknown]
  - Weight increased [Unknown]

NARRATIVE: CASE EVENT DATE: 2012
